FAERS Safety Report 7583280-3 (Version None)
Quarter: 2011Q2

REPORT INFORMATION
  Report Type: 
  Country: None (occurrence: None)
  Receive Date: 20110630
  Receipt Date: 20110620
  Transmission Date: 20111010
  Serious: Yes (Other)
  Sender: FDA-Public Use
  Company Number: US-AMGEN-USASP2011031423

PATIENT
  Age: 59 Year
  Sex: Female

DRUGS (2)
  1. CELLCEPT [Concomitant]
     Dosage: 1 MG, UNK
  2. ENBREL [Suspect]
     Indication: SCLERODERMA
     Dosage: 50 MG, QWK
     Dates: start: 20110601

REACTIONS (13)
  - DYSPNOEA [None]
  - NAUSEA [None]
  - INJECTION SITE SWELLING [None]
  - FEELING ABNORMAL [None]
  - INJECTION SITE REACTION [None]
  - HEADACHE [None]
  - ANXIETY [None]
  - EAR DISCOMFORT [None]
  - DIZZINESS [None]
  - INJECTION SITE ERYTHEMA [None]
  - HOT FLUSH [None]
  - SYNOVITIS [None]
  - INJECTION SITE PAIN [None]
